FAERS Safety Report 6883381-9 (Version None)
Quarter: 2010Q3

REPORT INFORMATION
  Report Type: 
  Country: None (occurrence: None)
  Receive Date: 20100727
  Receipt Date: 20100712
  Transmission Date: 20110219
  Serious: Yes (Other)
  Sender: FDA-Public Use
  Company Number: ACO_00972_2010

PATIENT
  Sex: Male
  Weight: 79.3795 kg

DRUGS (3)
  1. AMPYRA [Suspect]
     Indication: MULTIPLE SCLEROSIS
     Dosage: (10 MG BID ORAL)
     Route: 048
     Dates: start: 20100526, end: 20100527
  2. AVONEX [Concomitant]
  3. MULTI-VITAMINS [Concomitant]

REACTIONS (8)
  - ASTHENIA [None]
  - CHILLS [None]
  - GAIT DISTURBANCE [None]
  - HEADACHE [None]
  - MULTIPLE SCLEROSIS [None]
  - NAUSEA [None]
  - VOMITING [None]
  - WHEELCHAIR USER [None]
